FAERS Safety Report 8313072 (Version 6)
Quarter: 2013Q1

REPORT INFORMATION
  Report Type: Report from Study
  Country: US (occurrence: US)
  Receive Date: 20111228
  Receipt Date: 20130307
  Transmission Date: 20140127
  Serious: Yes (Hospitalization)
  Sender: FDA-Public Use
  Company Number: PHHO2011US15234

PATIENT
  Age: 68 Year
  Sex: Male
  Weight: 67.9 kg

DRUGS (13)
  1. CERTICAN [Suspect]
     Indication: RENAL TRANSPLANT
     Dosage: 0.75 MG, BID
     Dates: start: 20110825, end: 20110831
  2. CERTICAN [Suspect]
     Dosage: 1.5 MG, BID
     Route: 048
     Dates: start: 20110901, end: 20111005
  3. CERTICAN [Suspect]
     Dosage: 1.0 MG, BID
     Route: 048
     Dates: start: 20111006, end: 20111218
  4. CERTICAN [Suspect]
     Dosage: 1.0 MG, MORNING, 0.5 MG EVENING
     Route: 048
     Dates: start: 20111221, end: 20111221
  5. CERTICAN [Suspect]
     Dosage: 0.5 MG, BID
     Route: 048
     Dates: start: 20111222, end: 20111223
  6. VANCOMYCIN [Suspect]
     Dosage: 1000 MG, QD
     Route: 042
     Dates: start: 20110830, end: 20110905
  7. LEVAQUIN [Suspect]
     Dosage: 500 MG, QD
     Route: 048
     Dates: start: 20110830, end: 20110905
  8. PROGRAF [Suspect]
     Indication: IMMUNOSUPPRESSION
     Dosage: 3 MG, BID
     Route: 048
     Dates: start: 20110830
  9. PROGRAF [Suspect]
     Dosage: 1.5 MG, BID - 2 MG BID
     Route: 048
     Dates: start: 20111218
  10. DAPSONE [Concomitant]
     Indication: ANTIFUNGAL PROPHYLAXIS
     Dosage: 100 MG, QD
     Route: 048
     Dates: start: 20110829
  11. ASA [Concomitant]
     Indication: CARDIOVASCULAR EVENT PROPHYLAXIS
     Dosage: 325 MG, QD
  12. PREDNISONE [Concomitant]
     Indication: IMMUNOSUPPRESSION
     Dosage: 5 MG, QD
     Route: 048
     Dates: start: 20110830
  13. VALCYTE [Concomitant]
     Indication: PROPHYLAXIS
     Dosage: 450 MG, QD
     Route: 048
     Dates: start: 20110826

REACTIONS (7)
  - Renal failure acute [Recovered/Resolved]
  - Febrile neutropenia [Recovered/Resolved]
  - Pneumonia pseudomonas aeruginosa [Recovered/Resolved]
  - Chest pain [Recovered/Resolved]
  - Dyspnoea [Recovered/Resolved]
  - Pyrexia [Recovered/Resolved]
  - Chills [Recovered/Resolved]
